FAERS Safety Report 9270241 (Version 1)
Quarter: 2013Q2

REPORT INFORMATION
  Report Type: Other
  Country: IT (occurrence: IT)
  Receive Date: 20130503
  Receipt Date: 20130503
  Transmission Date: 20140414
  Serious: Yes (Hospitalization)
  Sender: FDA-Public Use
  Company Number: IT-ACTAVIS-2013-08029

PATIENT
  Age: 10 Year
  Sex: Male

DRUGS (3)
  1. IBUPROFEN (UNKNOWN) [Suspect]
     Indication: OROPHARYNGEAL PAIN
     Dosage: 10 ML, TID
     Route: 058
     Dates: start: 20130415, end: 20130415
  2. COUMADIN /00014802/ [Suspect]
     Indication: THROMBOSIS PROPHYLAXIS
     Dosage: 1.5 DF, DAILY
     Route: 048
     Dates: start: 20100101, end: 20130416
  3. AMOXICILLIN [Concomitant]
     Indication: PYREXIA
     Dosage: 500 MG, TID
     Route: 065
     Dates: start: 20130415, end: 20130416

REACTIONS (3)
  - Haemoptysis [Recovering/Resolving]
  - International normalised ratio increased [Recovering/Resolving]
  - Drug interaction [Recovering/Resolving]
